FAERS Safety Report 8964411 (Version 1)
Quarter: 2012Q4

REPORT INFORMATION
  Report Type: 
  Country: US (occurrence: US)
  Receive Date: 20121214
  Receipt Date: 20121214
  Transmission Date: 20130627
  Serious: No
  Sender: FDA-Public Use
  Company Number: US-GLAXOSMITHKLINE-A0983602A

PATIENT
  Age: 72 Year
  Sex: Male

DRUGS (9)
  1. AVODART [Suspect]
     Indication: PRODUCT USED FOR UNKNOWN INDICATION
     Dosage: 1CAP Per day
     Route: 048
     Dates: start: 201111
  2. EXFORGE [Concomitant]
     Route: 048
     Dates: start: 200804
  3. LIPITOR [Concomitant]
     Route: 048
     Dates: start: 201206
  4. PLAVIX [Concomitant]
     Route: 048
     Dates: start: 201206
  5. IMDUR [Concomitant]
     Route: 048
     Dates: start: 201206
  6. COREG [Concomitant]
     Route: 048
     Dates: start: 201206
  7. FLOMAX [Concomitant]
     Route: 048
     Dates: start: 201111
  8. ANDROGEL [Concomitant]
     Route: 061
     Dates: start: 201010
  9. GLUCOPHAGE [Concomitant]
     Route: 048
     Dates: start: 201203

REACTIONS (1)
  - Medication residue [Recovered/Resolved]
